FAERS Safety Report 24359682 (Version 1)
Quarter: 2024Q3

REPORT INFORMATION
  Report Type: Report from Study
  Country: US (occurrence: US)
  Receive Date: 20240924
  Receipt Date: 20240924
  Transmission Date: 20241016
  Serious: Yes (Life-Threatening, Hospitalization)
  Sender: CSL BEHRING
  Company Number: US-BEH-2024178934

PATIENT
  Sex: Female

DRUGS (1)
  1. PRIVIGEN [Suspect]
     Active Substance: HUMAN IMMUNOGLOBULIN G
     Indication: Immunodeficiency common variable
     Dosage: UNK, (STRENGTH 5)
     Route: 065

REACTIONS (4)
  - Intestinal perforation [Unknown]
  - Sinusitis [Unknown]
  - Staphylococcal infection [Unknown]
  - Drug ineffective [Unknown]
